FAERS Safety Report 6876390-7 (Version None)
Quarter: 2010Q3

REPORT INFORMATION
  Report Type: 
  Country: None (occurrence: None)
  Receive Date: 20100727
  Receipt Date: 20070712
  Transmission Date: 20110219
  Serious: Yes (Other)
  Sender: FDA-Public Use
  Company Number: US-PFIZER INC-2005148655

PATIENT
  Sex: Female
  Weight: 72.1 kg

DRUGS (7)
  1. CELEBREX [Suspect]
     Dates: start: 20040101
  2. VIOXX [Suspect]
     Indication: INFLAMMATION
  3. PREVACID [Concomitant]
  4. ACETYLSALICYLIC ACID SRT [Concomitant]
  5. NAPROXEN [Concomitant]
     Indication: INFLAMMATION
     Dates: start: 20000101, end: 20051002
  6. LIPITOR [Concomitant]
     Indication: BLOOD CHOLESTEROL INCREASED
  7. FLUOXETINE [Concomitant]
     Indication: DEPRESSION

REACTIONS (3)
  - CEREBROVASCULAR ACCIDENT [None]
  - MYOCARDIAL INFARCTION [None]
  - RENAL FAILURE [None]
